FAERS Safety Report 9853666 (Version 2)
Quarter: 2014Q1

REPORT INFORMATION
  Report Type: Spontaneous
  Country: CN (occurrence: CN)
  Receive Date: 20140129
  Receipt Date: 20140129
  Transmission Date: 20141002
  Serious: Yes (Hospitalization)
  Sender: FDA-Public Use
  Company Number: CN-B.I. PHARMACEUTICALS,INC./RIDGEFIELD-2014-BI-01427GD

PATIENT
  Age: 83 Year
  Sex: Male

DRUGS (3)
  1. SIFROL [Suspect]
     Indication: PARKINSON^S DISEASE
     Dosage: 0.375 MG
     Route: 048
     Dates: start: 201203
  2. SIFROL [Suspect]
     Dosage: 0.75 MG
     Route: 048
     Dates: start: 2012
  3. MADOPAR [Concomitant]
     Indication: PARKINSON^S DISEASE

REACTIONS (5)
  - Narcolepsy [Recovered/Resolved]
  - Narcolepsy [Recovered/Resolved]
  - Hypersomnia [Recovered/Resolved]
  - Fall [Unknown]
  - Fall [Unknown]
